FAERS Safety Report 17622699 (Version 3)
Quarter: 2020Q4

REPORT INFORMATION
  Report Type: Spontaneous
  Country: CA (occurrence: CA)
  Receive Date: 20200403
  Receipt Date: 20201008
  Transmission Date: 20210113
  Serious: Yes (Other)
  Sender: FDA-Public Use
  Company Number: CA-SA-2020SA082133

PATIENT

DRUGS (6)
  1. TOCTINO [Concomitant]
     Active Substance: ALITRETINOIN
     Indication: DERMATITIS ATOPIC
  2. DUPIXENT [Suspect]
     Active Substance: DUPILUMAB
     Indication: DERMATITIS ATOPIC
  3. METHOTREXATE. [Concomitant]
     Active Substance: METHOTREXATE
     Indication: DERMATITIS ATOPIC
  4. PREDNISONE. [Concomitant]
     Active Substance: PREDNISONE
     Indication: DERMATITIS ATOPIC
  5. CYCLOSPORIN [Concomitant]
     Active Substance: CYCLOSPORINE
     Indication: DERMATITIS ATOPIC
  6. DUPIXENT [Suspect]
     Active Substance: DUPILUMAB
     Indication: ECZEMA

REACTIONS (2)
  - Cutaneous T-cell lymphoma [Unknown]
  - Disease progression [Unknown]
